FAERS Safety Report 12142482 (Version 3)
Quarter: 2016Q2

REPORT INFORMATION
  Report Type: Report from Study
  Country: CA (occurrence: CA)
  Receive Date: 20160303
  Receipt Date: 20160407
  Transmission Date: 20160815
  Serious: Yes (Hospitalization, Other)
  Sender: FDA-Public Use
  Company Number: CA-ALEXION PHARMACEUTICALS INC-A201600856

PATIENT
  Age: 65 Year
  Sex: Male
  Weight: 89.8 kg

DRUGS (38)
  1. AMLODIPINE [Concomitant]
     Active Substance: AMLODIPINE BESYLATE
     Indication: HYPERTENSION
     Dosage: 10 MG, 2 TABS QD
     Route: 048
     Dates: start: 2006
  2. AMLODIPINE [Concomitant]
     Active Substance: AMLODIPINE BESYLATE
     Dosage: 10 MG, 1 TAB QD
     Route: 048
     Dates: start: 201207
  3. FOLIC ACID. [Concomitant]
     Active Substance: FOLIC ACID
     Indication: ANAEMIA
     Dosage: 5 MG, HALF TAB QD
     Route: 048
     Dates: start: 2006
  4. CORTISONE [Concomitant]
     Active Substance: CORTISONE\HYDROCORTISONE
     Dosage: 2.5 MG, QOD
     Route: 048
     Dates: start: 20151030
  5. VOLTAREN [Concomitant]
     Active Substance: DICLOFENAC SODIUM
     Indication: ARTHRALGIA
     Dosage: UNK, PRN
     Route: 065
     Dates: start: 2015
  6. SOLIRIS [Suspect]
     Active Substance: ECULIZUMAB
     Indication: PAROXYSMAL NOCTURNAL HAEMOGLOBINURIA
     Dosage: 600 MG, QW
     Route: 042
     Dates: start: 20120510, end: 20120531
  7. CORTISONE [Concomitant]
     Active Substance: CORTISONE\HYDROCORTISONE
     Indication: PRODUCT USED FOR UNKNOWN INDICATION
     Dosage: 7.5 MG, QD
     Route: 048
     Dates: start: 20120905
  8. STATEX                             /00036302/ [Concomitant]
     Active Substance: MORPHINE SULFATE
     Indication: BACK PAIN
     Dosage: 5 MG, PRN
     Route: 048
     Dates: start: 20140421
  9. PREDNISOLONE. [Concomitant]
     Active Substance: PREDNISOLONE
     Indication: CATARACT
     Dosage: 1 %, 1 GTT QID
     Route: 047
     Dates: start: 2010
  10. ASA [Concomitant]
     Active Substance: ASPIRIN
     Indication: HYPERTENSION
     Dosage: 80 MG, 1 TAB QD
     Route: 048
     Dates: start: 2006
  11. ASA [Concomitant]
     Active Substance: ASPIRIN
     Indication: PROPHYLAXIS
     Dosage: 80 MG, 1CO QD
     Route: 048
     Dates: start: 20120901
  12. GLUCOPHAGE [Concomitant]
     Active Substance: METFORMIN HYDROCHLORIDE
     Indication: DIABETES MELLITUS
     Dosage: 850 MG, 1 TAB BID
     Route: 048
     Dates: start: 20120902
  13. SOLIRIS [Suspect]
     Active Substance: ECULIZUMAB
     Dosage: 900 MG, Q2W
     Route: 042
     Dates: start: 20120607
  14. PREDNISONE. [Concomitant]
     Active Substance: PREDNISONE
     Indication: PROPHYLAXIS
     Dosage: 30 MG, QD
     Route: 048
     Dates: start: 2006
  15. LOSEC [Concomitant]
     Active Substance: OMEPRAZOLE
     Indication: PROPHYLAXIS
     Dosage: 20 MG, 1 TAB QD
     Route: 048
  16. PROLIA [Concomitant]
     Active Substance: DENOSUMAB
     Indication: OSTEOPOROSIS
     Dosage: 60 MG, Q 6 MONTHS
     Route: 058
     Dates: start: 20150401
  17. TYLENOL [Concomitant]
     Active Substance: ACETAMINOPHEN
     Indication: HEADACHE
     Dosage: UNK, 2 TABS PRN
     Route: 048
     Dates: start: 2015
  18. FERROUS SULFATE. [Concomitant]
     Active Substance: FERROUS SULFATE
     Dosage: 300 MG, 1 TAB QD
     Route: 048
  19. ATACAND [Concomitant]
     Active Substance: CANDESARTAN CILEXETIL
     Dosage: 32-25 MG, 1 TAB QD
     Route: 048
  20. ACETAMINOPHEN. [Concomitant]
     Active Substance: ACETAMINOPHEN
     Indication: PAIN
     Dosage: 325 MG, 2 TABS PO QID PRN
     Route: 048
     Dates: start: 2012
  21. ACETAMINOPHEN. [Concomitant]
     Active Substance: ACETAMINOPHEN
     Indication: HEADACHE
  22. TYLENOL [Concomitant]
     Active Substance: ACETAMINOPHEN
     Indication: PAIN
     Dosage: 500 MG, 2 TABS PRN
     Route: 065
  23. TYLENOL [Concomitant]
     Active Substance: ACETAMINOPHEN
     Indication: ARTHRALGIA
  24. ATACAND [Concomitant]
     Active Substance: CANDESARTAN CILEXETIL
     Indication: HYPERTENSION
     Dosage: 32-25 MG, 1 TAB QD
     Route: 048
     Dates: start: 2006, end: 20120913
  25. GLUCONORM                          /00082702/ [Concomitant]
     Indication: DIABETES MELLITUS
     Dosage: 2 MG, 2 TAB QD
     Route: 048
     Dates: start: 2006
  26. AZOPT [Concomitant]
     Active Substance: BRINZOLAMIDE
     Indication: CATARACT
     Dosage: 1 %, 1 GTT BID
     Route: 047
     Dates: start: 2008
  27. FERROUS SULFATE. [Concomitant]
     Active Substance: FERROUS SULFATE
     Indication: ANAEMIA
     Dosage: 300 MG, 1 TAB QD
     Route: 048
     Dates: start: 2006, end: 201502
  28. VITAMIN B12 [Concomitant]
     Active Substance: CYANOCOBALAMIN
     Indication: ANAEMIA
     Dosage: 1000 ?G, 1 TAB QD
     Route: 048
     Dates: start: 2006
  29. NORVASC [Concomitant]
     Active Substance: AMLODIPINE BESYLATE
     Indication: HYPERTENSION
     Dosage: 10 MG, QD
     Route: 048
     Dates: start: 201209
  30. LASIX [Concomitant]
     Active Substance: FUROSEMIDE
     Indication: PERIPHERAL SWELLING
     Dosage: 10 MG, 1 CO QOD
     Route: 048
     Dates: start: 20120902, end: 201209
  31. LASIX [Concomitant]
     Active Substance: FUROSEMIDE
     Dosage: 20 MG, 1 CO QD
     Route: 048
     Dates: start: 20131231
  32. MAGNESIUM [Concomitant]
     Active Substance: MAGNESIUM
     Indication: BLOOD MAGNESIUM DECREASED
     Dosage: 250 MG, TID
     Route: 048
     Dates: start: 201504
  33. OMEPRAZOLE. [Concomitant]
     Active Substance: OMEPRAZOLE
     Indication: GASTROINTESTINAL DISORDER
     Dosage: 20 MG, 1 TAB QD
     Route: 048
     Dates: start: 2006
  34. ALPHAGAN P [Concomitant]
     Active Substance: BRIMONIDINE TARTRATE
     Indication: CATARACT
     Dosage: 0.2 %, 1 GTT BID
     Route: 047
     Dates: start: 2008
  35. FLOMAX [Concomitant]
     Active Substance: TAMSULOSIN HYDROCHLORIDE
     Indication: PRODUCT USED FOR UNKNOWN INDICATION
     Dosage: 0.4 MG, 1 TAB BID
     Route: 048
     Dates: start: 2011
  36. NOVOLIN [Concomitant]
     Active Substance: INSULIN HUMAN
     Indication: DIABETES MELLITUS
     Dosage: 50/50, QD QAM
     Route: 058
     Dates: start: 2007
  37. METFORMIN [Concomitant]
     Active Substance: METFORMIN HYDROCHLORIDE
     Indication: DIABETES MELLITUS
     Dosage: 850 MG, 1 TAB BID
     Route: 048
     Dates: start: 2006
  38. NAPROXEN. [Concomitant]
     Active Substance: NAPROXEN
     Indication: PROPHYLAXIS
     Dosage: 250 MG, 1 TAB QD-BID PRN
     Route: 048
     Dates: start: 2011

REACTIONS (7)
  - Gait disturbance [Unknown]
  - Haemoglobin decreased [Unknown]
  - Blood magnesium decreased [Not Recovered/Not Resolved]
  - Weight decreased [Recovered/Resolved]
  - Fatigue [Not Recovered/Not Resolved]
  - Asthenia [Recovering/Resolving]
  - Hospitalisation [Unknown]

NARRATIVE: CASE EVENT DATE: 201512
